FAERS Safety Report 4465896-6 (Version None)
Quarter: 2004Q3

REPORT INFORMATION
  Report Type: 
  Country: None (occurrence: None)
  Receive Date: 20040930
  Receipt Date: 20040715
  Transmission Date: 20050211
  Serious: No
  Sender: FDA-Public Use
  Company Number: USA040670928

PATIENT
  Age: 9 Year
  Sex: Male
  Weight: 37 kg

DRUGS (3)
  1. STRATTERA [Suspect]
     Indication: ATTENTION DEFICIT/HYPERACTIVITY DISORDER
     Dosage: 25 MG DAY
     Dates: start: 20040518, end: 20040618
  2. CLARITIN [Concomitant]
  3. ADDERALL 10 [Concomitant]

REACTIONS (3)
  - DIABETES MELLITUS INSULIN-DEPENDENT [None]
  - ENURESIS [None]
  - FLUID RETENTION [None]
